FAERS Safety Report 5875159-X (Version None)
Quarter: 2008Q3

REPORT INFORMATION
  Report Type: 
  Country: None (occurrence: None)
  Receive Date: 20080904
  Receipt Date: 20080819
  Transmission Date: 20090109
  Serious: Yes (Life-Threatening, Hospitalization)
  Sender: FDA-Public Use
  Company Number: AMR6289232-1

PATIENT
  Sex: Female

DRUGS (1)
  1. SECRET CLINICAL STRENGTH ANTIPERSPIRANT/DEODORANT OTC DRUG, PROCTOR + [Suspect]
     Dosage: 2- 3 TIMES IN UNDERARM

REACTIONS (4)
  - CHEST PAIN [None]
  - HYPERSENSITIVITY [None]
  - URTICARIA [None]
  - WHEEZING [None]
